FAERS Safety Report 10615062 (Version 2)
Quarter: 2014Q4

REPORT INFORMATION
  Report Type: Report from Study
  Country: TR (occurrence: TR)
  Receive Date: 20141201
  Receipt Date: 20141208
  Transmission Date: 20150529
  Serious: Yes (Death)
  Sender: FDA-Public Use
  Company Number: PHHY2014TR156011

PATIENT
  Sex: Female
  Weight: 69.5 kg

DRUGS (1)
  1. SANDOSTATIN LAR DEPOT [Suspect]
     Active Substance: OCTREOTIDE ACETATE
     Indication: NEUROENDOCRINE TUMOUR
     Dosage: 30 MG, ONCE EVERY 28 DAYS
     Route: 030
     Dates: start: 20131008, end: 20131204

REACTIONS (1)
  - Malignant neoplasm progression [Fatal]
